FAERS Safety Report 6379092-9 (Version None)
Quarter: 2009Q3

REPORT INFORMATION
  Report Type: 
  Country: None (occurrence: None)
  Receive Date: 20090928
  Receipt Date: 20090915
  Transmission Date: 20100115
  Serious: Yes (Life-Threatening)
  Sender: FDA-Public Use
  Company Number: CA-SOLVAY-00308005946

PATIENT
  Age: 60 Year
  Sex: Male
  Weight: 100 kg

DRUGS (2)
  1. CORTISONE [Concomitant]
     Indication: DRUG USE FOR UNKNOWN INDICATION
     Dosage: DAILY DOSE:  UNKNOWN
     Route: 065
     Dates: start: 20061201, end: 20070101
  2. ANDROGEL [Suspect]
     Indication: ANDROGEN REPLACEMENT THERAPY
     Dosage: DAILY DOSE: 1 DOSAGE FORM; FREQUENCY: DAILY
     Route: 062
     Dates: start: 20070201, end: 20080901

REACTIONS (8)
  - COUGH [None]
  - DRUG INEFFECTIVE [None]
  - DYSPHONIA [None]
  - FATIGUE [None]
  - GENITAL RASH [None]
  - HEADACHE [None]
  - LUNG NEOPLASM MALIGNANT [None]
  - RASH [None]
